FAERS Safety Report 6882097-2 (Version None)
Quarter: 2010Q3

REPORT INFORMATION
  Report Type: 
  Country: None (occurrence: None)
  Receive Date: 20100729
  Receipt Date: 20100720
  Transmission Date: 20110219
  Serious: Yes (Hospitalization, Disabling)
  Sender: FDA-Public Use
  Company Number: US-MYLANLABS-2010S1013329

PATIENT
  Sex: Female

DRUGS (1)
  1. FENTANYL-100 [Suspect]
     Route: 062

REACTIONS (4)
  - AMNESIA [None]
  - COMA [None]
  - SENSORY LOSS [None]
  - UNRESPONSIVE TO STIMULI [None]
